FAERS Safety Report 5131568-8 (Version None)
Quarter: 2006Q4

REPORT INFORMATION
  Report Type: 
  Country: None (occurrence: None)
  Receive Date: 20061016
  Receipt Date: 20061004
  Transmission Date: 20070319
  Serious: Yes (Other)
  Sender: FDA-Public Use
  Company Number: 2006122795

PATIENT
  Age: 26 Year
  Sex: Male
  Weight: 80 kg

DRUGS (1)
  1. VIAGRA [Suspect]
     Dosage: (3 IN 1 D), ORAL
     Route: 048
     Dates: start: 20050101

REACTIONS (1)
  - DELUSIONAL DISORDER, PERSECUTORY TYPE [None]
